FAERS Safety Report 9394075 (Version 2)
Quarter: 2013Q4

REPORT INFORMATION
  Report Type: Spontaneous
  Country: US (occurrence: US)
  Receive Date: 20130710
  Receipt Date: 20131002
  Transmission Date: 20140711
  Serious: No
  Sender: FDA-Public Use
  Company Number: US-009507513-1307USA005330

PATIENT
  Sex: Female
  Weight: 68.27 kg

DRUGS (2)
  1. CLARITIN [Suspect]
     Indication: SNEEZING
     Dosage: 10 MG, QD
     Route: 048
  2. CLARITIN [Suspect]
     Indication: EYE PRURITUS

REACTIONS (1)
  - Drug ineffective [Unknown]
